FAERS Safety Report 15977156 (Version 1)
Quarter: 2019Q1

REPORT INFORMATION
  Report Type: Spontaneous
  Country: IT (occurrence: IT)
  Receive Date: 20190218
  Receipt Date: 20190218
  Transmission Date: 20190418
  Serious: Yes (Death)
  Sender: FDA-Public Use
  Company Number: IT-BRISTOL-MYERS SQUIBB COMPANY-BMS-2019-014312

PATIENT
  Age: 82 Year
  Sex: Male
  Weight: 74 kg

DRUGS (1)
  1. NIVOLUMAB [Suspect]
     Active Substance: NIVOLUMAB
     Indication: METASTATIC MALIGNANT MELANOMA
     Dosage: 240 MG, QCYCLE
     Route: 042
     Dates: start: 20181129, end: 20181213

REACTIONS (6)
  - Decreased appetite [Fatal]
  - Dyspnoea [Fatal]
  - Dysphagia [Fatal]
  - Muscular weakness [Fatal]
  - Asthenia [Fatal]
  - Eyelid ptosis [Fatal]

NARRATIVE: CASE EVENT DATE: 20181221
